FAERS Safety Report 7469300-5 (Version None)
Quarter: 2011Q2

REPORT INFORMATION
  Report Type: 
  Country: None (occurrence: None)
  Receive Date: 20110510
  Receipt Date: 20110504
  Transmission Date: 20111010
  Serious: Yes (Other)
  Sender: FDA-Public Use
  Company Number: US-PFIZER INC-2011096740

PATIENT
  Sex: Male

DRUGS (1)
  1. DETROL LA [Suspect]
     Dosage: UNK

REACTIONS (5)
  - CYSTITIS [None]
  - TREMOR [None]
  - BLOOD COUNT ABNORMAL [None]
  - FEELING COLD [None]
  - BLADDER PAIN [None]
